FAERS Safety Report 8366459-2 (Version None)
Quarter: 2012Q2

REPORT INFORMATION
  Report Type: 
  Country: None (occurrence: None)
  Receive Date: 20120517
  Receipt Date: 20120511
  Transmission Date: 20120825
  Serious: Yes (Hospitalization)
  Sender: FDA-Public Use
  Company Number: US-BAYER-2012-047586

PATIENT
  Age: 25 Year
  Sex: Female
  Weight: 106.12 kg

DRUGS (4)
  1. PHENTERMINE [Concomitant]
     Dosage: 37.5 MG, DAILY
  2. AMANTADINE HCL [Concomitant]
     Dosage: 100 MG, BID
  3. TAMIFLU [Concomitant]
     Dosage: 75 MG, BID
  4. YASMIN [Suspect]
     Indication: ORAL CONTRACEPTION
     Dosage: UNK
     Dates: start: 20081001

REACTIONS (2)
  - PULMONARY EMBOLISM [None]
  - DEEP VEIN THROMBOSIS [None]
